FAERS Safety Report 22202341 (Version 2)
Quarter: 2023Q2

REPORT INFORMATION
  Report Type: Spontaneous
  Country: US (occurrence: US)
  Receive Date: 20230412
  Receipt Date: 20230421
  Transmission Date: 20230721
  Serious: No
  Sender: FDA-Public Use
  Company Number: US-IDORSIA-004442-2023-US

PATIENT
  Sex: Female

DRUGS (1)
  1. QUVIVIQ [Suspect]
     Active Substance: DARIDOREXANT
     Indication: Insomnia
     Dosage: 50 MG, QD
     Route: 048

REACTIONS (6)
  - Nightmare [Recovered/Resolved]
  - Concomitant disease aggravated [Recovered/Resolved]
  - Pain [Recovered/Resolved]
  - Sleep paralysis [Recovered/Resolved]
  - Lethargy [Recovered/Resolved]
  - Middle insomnia [Recovered/Resolved]
